FAERS Safety Report 7089555-9 (Version None)
Quarter: 2010Q4

REPORT INFORMATION
  Report Type: 
  Country: None (occurrence: None)
  Receive Date: 20101108
  Receipt Date: 20101104
  Transmission Date: 20110411
  Serious: Yes (Death)
  Sender: FDA-Public Use
  Company Number: US-CELGENEUS-163-21880-10102061

PATIENT
  Sex: Female

DRUGS (7)
  1. REVLIMID [Suspect]
     Indication: MULTIPLE MYELOMA
     Route: 048
     Dates: start: 20100920, end: 20100927
  2. MORPHINE [Concomitant]
     Indication: PAIN
     Route: 065
  3. NIFEDICAL [Concomitant]
     Route: 065
  4. ZOFRAN [Concomitant]
     Route: 065
  5. METOPROLOL [Concomitant]
     Indication: BLOOD PRESSURE
     Route: 065
  6. PRILOSEC [Concomitant]
     Route: 065
  7. SIMVASTATIN [Concomitant]
     Route: 065

REACTIONS (2)
  - MULTIPLE MYELOMA [None]
  - RENAL FAILURE [None]
